FAERS Safety Report 14671393 (Version 2)
Quarter: 2020Q4

REPORT INFORMATION
  Report Type: Spontaneous
  Country: ES (occurrence: ES)
  Receive Date: 20180323
  Receipt Date: 20201211
  Transmission Date: 20210113
  Serious: Yes (Other)
  Sender: FDA-Public Use
  Company Number: ES-B.I. PHARMACEUTICALS,INC./RIDGEFIELD-2018-12-001058

PATIENT
  Age: 45 Year
  Sex: Male
  Weight: 110 kg

DRUGS (4)
  1. NOLOTIL [METAMIZOLE MAGNESIUM] [Concomitant]
     Active Substance: METAMIZOLE MAGNESIUM
     Indication: PRODUCT USED FOR UNKNOWN INDICATION
     Route: 048
     Dates: start: 20180201
  2. DICLOFENACO CINFA [DICLOFENAC SODIUM] [Concomitant]
     Indication: PRODUCT USED FOR UNKNOWN INDICATION
     Route: 048
     Dates: start: 20180201
  3. JARDIANCE [Suspect]
     Active Substance: EMPAGLIFLOZIN
     Indication: HYPERGLYCAEMIA
     Route: 048
     Dates: start: 20180131, end: 20180215
  4. OMEPRAZOL MABO [Concomitant]
     Indication: PRODUCT USED FOR UNKNOWN INDICATION
     Route: 048
     Dates: start: 20180201

REACTIONS (3)
  - Diarrhoea [Recovered/Resolved]
  - Vomiting [Recovered/Resolved]
  - Abdominal pain [Recovered/Resolved]

NARRATIVE: CASE EVENT DATE: 20180202
